FAERS Safety Report 16531219 (Version 3)
Quarter: 2021Q2

REPORT INFORMATION
  Report Type: Spontaneous
  Country: DE (occurrence: DE)
  Receive Date: 20190705
  Receipt Date: 20210621
  Transmission Date: 20210716
  Serious: Yes (Congenital Anomaly, Other)
  Sender: FDA-Public Use
  Company Number: DE-AUROBINDO-AUR-APL-2019-037316

PATIENT
  Sex: Female
  Weight: 3.4 kg

DRUGS (4)
  1. BUDECORT [Suspect]
     Active Substance: BUDESONIDE
     Indication: ALLERGIC COUGH
     Dosage: UNK
     Route: 064
     Dates: start: 20130527, end: 20140313
  2. AMOXICILLIN. [Concomitant]
     Active Substance: AMOXICILLIN
     Indication: PNEUMONIA
     Dosage: 1000 MILLIGRAM, 3 TIMES A DAY (1000 MG, 3X/DAY (TID))
     Route: 064
     Dates: start: 201401, end: 201401
  3. ZYRTEC [Suspect]
     Active Substance: CETIRIZINE HYDROCHLORIDE
     Indication: HYPERSENSITIVITY
     Dosage: 10 MG, ONCE DAILY (QD)
     Route: 064
     Dates: start: 20130527, end: 20140313
  4. MONTELUKAST [Suspect]
     Active Substance: MONTELUKAST SODIUM
     Indication: ALLERGIC COUGH
     Dosage: 10 MILLIGRAM, ONCE A DAY, 1 TRIMESTER
     Route: 064
     Dates: start: 20130527, end: 20130621

REACTIONS (4)
  - Atrial septal defect [Not Recovered/Not Resolved]
  - Pulmonary artery stenosis congenital [Not Recovered/Not Resolved]
  - Foetal exposure during pregnancy [Recovered/Resolved]
  - Pneumonia [Unknown]

NARRATIVE: CASE EVENT DATE: 20130527
